FAERS Safety Report 7611379-1 (Version None)
Quarter: 2011Q3

REPORT INFORMATION
  Report Type: 
  Country: None (occurrence: None)
  Receive Date: 20110707
  Receipt Date: 20110624
  Transmission Date: 20111222
  Serious: Yes (Hospitalization)
  Sender: FDA-Public Use
  Company Number: WAES 1101USA03484

PATIENT
  Age: 55 Year
  Sex: Male

DRUGS (2)
  1. ATAZANAVIR [Suspect]
     Indication: HIV INFECTION
     Dosage: 300 MG, BID
     Dates: start: 20100713
  2. TAB RALTEGRAVIR POTASSIUM UNK [Suspect]
     Indication: HIV INFECTION
     Dosage: 400 MG,BID,PO
     Route: 048
     Dates: start: 20100713

REACTIONS (5)
  - ADJUSTMENT DISORDER WITH DEPRESSED MOOD [None]
  - OEDEMA PERIPHERAL [None]
  - INSOMNIA [None]
  - DEPRESSION [None]
  - SUICIDAL IDEATION [None]
